FAERS Safety Report 7598173-5 (Version None)
Quarter: 2011Q3

REPORT INFORMATION
  Report Type: 
  Country: None (occurrence: None)
  Receive Date: 20110708
  Receipt Date: 20110630
  Transmission Date: 20111222
  Serious: Yes (Death)
  Sender: FDA-Public Use
  Company Number: US-CELGENEUS-163-21880-11053489

PATIENT
  Sex: Male

DRUGS (14)
  1. REVLIMID [Suspect]
     Dosage: 10 MILLIGRAM
     Route: 048
     Dates: start: 20110427, end: 20110101
  2. LANOXIN [Concomitant]
     Dosage: .25 MILLIGRAM
     Route: 065
  3. REVLIMID [Suspect]
     Dosage: 10 MILLIGRAM
     Route: 048
     Dates: start: 20101230, end: 20110411
  4. MYCAMINE [Concomitant]
     Dosage: 50 MILLIGRAM
     Route: 050
  5. LOVAZA [Concomitant]
     Dosage: 1000 MILLIGRAM
     Route: 065
  6. ASCORBIC ACID [Concomitant]
     Dosage: 500 MILLIGRAM
     Route: 065
  7. CALCIUM +D [Concomitant]
     Route: 065
  8. GLIMEPIRIDE [Concomitant]
     Dosage: 2 MILLIGRAM
     Route: 065
  9. NIASPAN [Concomitant]
     Dosage: 500 MILLIGRAM
     Route: 065
  10. DIGOXIN [Concomitant]
     Dosage: .125 MILLIGRAM
     Route: 065
  11. BYSTOLIC [Concomitant]
     Dosage: 10 MILLIGRAM
     Route: 065
  12. SENIOR MULTI PLUS [Concomitant]
     Route: 065
  13. LEVITRA [Concomitant]
     Dosage: 10 MILLIGRAM
     Route: 065
  14. ACTOS [Concomitant]
     Dosage: 30 MILLIGRAM
     Route: 065

REACTIONS (2)
  - PNEUMONIA BACTERIAL [None]
  - SEPSIS SYNDROME [None]
